FAERS Safety Report 18592410 (Version 1)
Quarter: 2020Q4

REPORT INFORMATION
  Report Type: Spontaneous
  Country: IT (occurrence: IT)
  Receive Date: 20201208
  Receipt Date: 20201208
  Transmission Date: 20210114
  Serious: Yes (Disabling)
  Sender: FDA-Public Use
  Company Number: IT-ALLERGAN-2046856US

PATIENT
  Sex: Male

DRUGS (1)
  1. XYDALBA [Suspect]
     Active Substance: DALBAVANCIN HYDROCHLORIDE
     Indication: INFECTION
     Dosage: 500 MG, SINGLE
     Route: 041
     Dates: start: 20200727, end: 20200727

REACTIONS (2)
  - Aplastic anaemia [Not Recovered/Not Resolved]
  - Off label use [Unknown]

NARRATIVE: CASE EVENT DATE: 20200903
